FAERS Safety Report 8414892-2 (Version None)
Quarter: 2012Q2

REPORT INFORMATION
  Report Type: 
  Country: None (occurrence: None)
  Receive Date: 20120601
  Receipt Date: 20120601
  Transmission Date: 20120825
  Serious: Yes (Hospitalization)
  Sender: FDA-Public Use
  Company Number: None

PATIENT
  Sex: Female
  Weight: 73.8 kg

DRUGS (1)
  1. CISPLATIN [Suspect]
     Dosage: 461.6 MG

REACTIONS (9)
  - SALIVA ALTERED [None]
  - VOMITING [None]
  - DECREASED APPETITE [None]
  - DEHYDRATION [None]
  - FAILURE TO THRIVE [None]
  - PAROTITIS [None]
  - DEPRESSION [None]
  - SOCIAL AVOIDANT BEHAVIOUR [None]
  - NAUSEA [None]
